FAERS Safety Report 9748212 (Version 2)
Quarter: 2014Q1

REPORT INFORMATION
  Report Type: Spontaneous
  Country: US (occurrence: US)
  Receive Date: 20131212
  Receipt Date: 20140110
  Transmission Date: 20141002
  Serious: No
  Sender: FDA-Public Use
  Company Number: US-PFIZER INC-2013354250

PATIENT
  Sex: Male

DRUGS (3)
  1. NEURONTIN [Suspect]
     Dosage: UNK
  2. PREGABALIN [Suspect]
     Dosage: UNK
  3. OXYCODONE HYDROCHLORIDE [Suspect]
     Dosage: UNK

REACTIONS (1)
  - Drug hypersensitivity [Unknown]
